FAERS Safety Report 21987966 (Version 1)
Quarter: 2023Q1

REPORT INFORMATION
  Report Type: Spontaneous
  Country: ES (occurrence: ES)
  Receive Date: 20230214
  Receipt Date: 20230214
  Transmission Date: 20230418
  Serious: Yes (Other)
  Sender: FDA-Public Use
  Company Number: ES-INTERCEPT-PM2021000603

PATIENT
  Age: 56 Year
  Sex: Female
  Weight: 65.8 kg

DRUGS (3)
  1. OCALIVA [Suspect]
     Active Substance: OBETICHOLIC ACID
     Indication: Primary biliary cholangitis
     Dosage: 5 MG, QID, FILM COATED TABLET (5 MG COMPRIMIDOS RECUBIERTOS CON PELICULA, 30 COMPRIMIDOS)
     Route: 048
     Dates: start: 20200911, end: 20210120
  2. URSOBILANE [Concomitant]
     Dosage: 500 MG, BID
     Route: 048
     Dates: start: 20180228
  3. MONUROL [Concomitant]
     Active Substance: FOSFOMYCIN TROMETHAMINE
     Dosage: 3 G (DOSIS ?NICA)
     Route: 048
     Dates: start: 20200921, end: 20200921

REACTIONS (1)
  - Lichen planus [Recovered/Resolved]

NARRATIVE: CASE EVENT DATE: 20210120
